FAERS Safety Report 6985410 (Version 2)
Quarter: 2021Q1

REPORT INFORMATION
  Report Type: Report from Study
  Country: GB (occurrence: GB)
  Receive Date: 20090504
  Receipt Date: 20210301
  Transmission Date: 20210420
  Serious: Yes (Other)
  Sender: FDA-Public Use
  Company Number: GB-PFIZER INC-2009201969

PATIENT
  Age: 11 Year
  Sex: Female

DRUGS (4)
  1. NIFEDIPINE. [Interacting]
     Active Substance: NIFEDIPINE
     Indication: HYPERTENSION
     Dosage: FROM DAY 17 TO DAY 57
  2. ASPARAGINASE [Suspect]
     Active Substance: ASPARAGINASE
     Indication: ACUTE LYMPHOCYTIC LEUKAEMIA
     Dosage: UNK
     Dates: start: 19950208
  3. ITRACONAZOLE. [Interacting]
     Active Substance: ITRACONAZOLE
     Indication: FUNGAL INFECTION
     Dosage: FROM DAY 7 TO DAY 26
  4. VINCRISTINE SULFATE. [Suspect]
     Active Substance: VINCRISTINE SULFATE
     Indication: ACUTE LYMPHOCYTIC LEUKAEMIA
     Dosage: ON DAYS 1, 8, 15
     Dates: start: 19950208

REACTIONS (6)
  - Ileus paralytic [Unknown]
  - Hyponatraemia [Unknown]
  - Seizure [Unknown]
  - Hypertension [Unknown]
  - Drug interaction [Unknown]
  - Inappropriate antidiuretic hormone secretion [Unknown]
